FAERS Safety Report 5347902-X (Version None)
Quarter: 2007Q2

REPORT INFORMATION
  Report Type: 
  Country: None (occurrence: None)
  Receive Date: 20070514
  Receipt Date: 20070208
  Transmission Date: 20071010
  Serious: Yes (Other)
  Sender: FDA-Public Use
  Company Number: 34308

PATIENT
  Age: 59 Year
  Sex: Male

DRUGS (3)
  1. PROPOFOL [Suspect]
     Indication: SEDATION
     Dates: start: 20070201
  2. ATIVAN [Concomitant]
  3. PROTONIX [Concomitant]

REACTIONS (1)
  - LABORATORY TEST ABNORMAL [None]
